FAERS Safety Report 9494452 (Version 5)
Quarter: 2014Q3

REPORT INFORMATION
  Report Type: Spontaneous
  Country: TR (occurrence: TR)
  Receive Date: 20130903
  Receipt Date: 20140821
  Transmission Date: 20150326
  Serious: Yes (Other)
  Sender: FDA-Public Use
  Company Number: TR-AMGEN-TURSP2012071665

PATIENT
  Age: 49 Year
  Sex: Female

DRUGS (2)
  1. ENBREL [Suspect]
     Active Substance: ETANERCEPT
     Dosage: 25 MG, 2X/WEEK
     Route: 058
  2. ENBREL [Suspect]
     Active Substance: ETANERCEPT
     Indication: RHEUMATOID ARTHRITIS
     Dosage: 25 MG, 2X/WEEK
     Route: 058
     Dates: start: 20110825

REACTIONS (14)
  - Nasopharyngitis [Recovered/Resolved]
  - Psoriasis [Recovered/Resolved]
  - Bone pain [Recovered/Resolved]
  - Injection site pain [Recovered/Resolved]
  - Osteoporosis [Unknown]
  - Pyrexia [Recovered/Resolved]
  - Rheumatoid arthritis [Recovered/Resolved]
  - Wound [Recovered/Resolved]
  - Skin wound [Recovered/Resolved]
  - Influenza [Recovered/Resolved]
  - Pain [Not Recovered/Not Resolved]
  - Chapped lips [Recovered/Resolved]
  - Product quality issue [Not Recovered/Not Resolved]
  - Urinary tract infection [Not Recovered/Not Resolved]

NARRATIVE: CASE EVENT DATE: 201108
